FAERS Safety Report 7599339-0 (Version None)
Quarter: 2011Q3

REPORT INFORMATION
  Report Type: 
  Country: None (occurrence: None)
  Receive Date: 20110711
  Receipt Date: 20091122
  Transmission Date: 20111222
  Serious: Yes (Death, Other)
  Sender: FDA-Public Use
  Company Number: US-BAYER-200940473NA

PATIENT
  Age: 65 Year
  Sex: Female
  Weight: 76 kg

DRUGS (19)
  1. VERSED [Concomitant]
     Dosage: 4 MG
     Route: 042
     Dates: start: 20060726, end: 20060726
  2. NITROGLYCERIN [Concomitant]
     Dosage: 100 MG
     Route: 042
     Dates: start: 20060726, end: 20060726
  3. ZAROXOLYN [Concomitant]
     Dosage: UNK
     Dates: start: 20060727
  4. TRASYLOL [Suspect]
     Indication: PRODUCT USED FOR UNKNOWN INDICATION
     Dosage: 1 ML, ONCE, INITIAL TEST DOSE
     Route: 042
     Dates: start: 20060726, end: 20060726
  5. CRESTOR [Concomitant]
     Dosage: 5 MG
     Route: 048
     Dates: end: 20060726
  6. ANCEF [Concomitant]
     Dosage: 2 G
     Route: 042
     Dates: start: 20060726, end: 20060726
  7. TRASYLOL [Suspect]
     Dosage: 100 ML LOADING DOSE
     Route: 042
     Dates: start: 20060726, end: 20060726
  8. XANAX [Concomitant]
     Dosage: 0.25 MG
     Route: 048
     Dates: end: 20060726
  9. VASOTEC [Concomitant]
     Dosage: UNK
     Dates: start: 20060726
  10. HEPARIN [Concomitant]
     Dosage: 24,000 UNITS
     Route: 042
     Dates: start: 20060726, end: 20060726
  11. TRASYLOL [Suspect]
     Dosage: 25ML/HR INFUSION
     Route: 042
     Dates: start: 20060726, end: 20060726
  12. LISINOPRIL [Concomitant]
     Dosage: 20 MG
     Route: 048
  13. PLAVIX [Concomitant]
     Dosage: 75 MG
     Route: 048
     Dates: end: 20060719
  14. LASIX [Concomitant]
     Dosage: UNK
     Dates: start: 20060727
  15. ACETYLSALICYLIC ACID SRT [Concomitant]
     Dosage: 325 MG, QD
     Route: 048
     Dates: end: 20060719
  16. TOPROL-XL [Concomitant]
     Dosage: 100 MG
     Route: 048
     Dates: end: 20060726
  17. HEPARIN [Concomitant]
     Dosage: 10,000 UNITS
     Route: 042
     Dates: start: 20060726, end: 20060726
  18. DOBUTAMINE HCL [Concomitant]
     Dosage: 3-8 MCG/KG/MIN
     Route: 042
     Dates: start: 20060726, end: 20060726
  19. AMIODARONE HCL [Concomitant]
     Dosage: UNK
     Dates: start: 20060726

REACTIONS (13)
  - RENAL IMPAIRMENT [None]
  - EMOTIONAL DISTRESS [None]
  - FEAR [None]
  - INJURY [None]
  - ANXIETY [None]
  - MULTI-ORGAN FAILURE [None]
  - RENAL INJURY [None]
  - UNEVALUABLE EVENT [None]
  - ANHEDONIA [None]
  - DEATH [None]
  - RENAL FAILURE [None]
  - STRESS [None]
  - PAIN [None]
